FAERS Safety Report 10182399 (Version 1)
Quarter: 2014Q2

REPORT INFORMATION
  Report Type: Spontaneous
  Country: US (occurrence: None)
  Receive Date: 20140519
  Receipt Date: 20140519
  Transmission Date: 20141212
  Serious: No
  Sender: FDA-Public Use
  Company Number: None

PATIENT
  Age: 47 Year
  Sex: Female
  Weight: 99.79 kg

DRUGS (2)
  1. DULOXETINE [Suspect]
     Indication: DEPRESSION
     Route: 048
     Dates: start: 20140303, end: 20140401
  2. DULOXETINE [Suspect]
     Indication: PAIN
     Route: 048
     Dates: start: 20140303, end: 20140401

REACTIONS (3)
  - Rash [None]
  - Drug ineffective [None]
  - Product substitution issue [None]
